FAERS Safety Report 8895803 (Version 2)
Quarter: 2013Q2

REPORT INFORMATION
  Report Type: Spontaneous
  Country: US (occurrence: US)
  Receive Date: 20121108
  Receipt Date: 20130502
  Transmission Date: 20140414
  Serious: Yes (Hospitalization, Disabling, Other)
  Sender: FDA-Public Use
  Company Number: US-009507513-0806USA02300

PATIENT
  Sex: Female
  Weight: 88.45 kg

DRUGS (9)
  1. FOSAMAX [Suspect]
     Indication: OSTEOPOROSIS
     Dosage: 70 MG, QW
     Route: 048
     Dates: start: 200109, end: 200803
  2. FOSAMAX [Suspect]
     Indication: OSTEOPOROSIS PROPHYLAXIS
  3. FOSAMAX [Suspect]
     Indication: OSTEOPOROSIS PROPHYLAXIS
     Dosage: 70 MG, QW
     Route: 048
     Dates: start: 20080407, end: 200805
  4. FOSAMAX [Suspect]
     Indication: OSTEOPOROSIS
  5. MK-9278 [Concomitant]
     Dosage: UNK UNK, QD
     Dates: start: 1991
  6. CALCIUM (UNSPECIFIED) [Concomitant]
     Dosage: 1200 MG, QD
     Dates: start: 1991
  7. PRILOSEC [Concomitant]
     Indication: GASTROOESOPHAGEAL REFLUX DISEASE
     Dosage: 20 MG, QD
     Route: 048
     Dates: start: 200106
  8. SYNTHROID [Concomitant]
     Indication: HYPOTHYROIDISM
     Dosage: 50 ?G, QD
  9. VITAMINS (UNSPECIFIED) [Concomitant]
     Dosage: UNK
     Route: 048
     Dates: start: 1991

REACTIONS (73)
  - Open reduction of fracture [Unknown]
  - Femur fracture [Recovering/Resolving]
  - Femur fracture [Not Recovered/Not Resolved]
  - Lumbar spinal stenosis [Unknown]
  - Intervertebral disc degeneration [Unknown]
  - Deep vein thrombosis [Unknown]
  - Sinus disorder [Unknown]
  - Pulmonary embolism [Unknown]
  - Fracture delayed union [Unknown]
  - Synovial cyst [Unknown]
  - Vertebral column mass [Unknown]
  - Intervertebral disc protrusion [Unknown]
  - Lumbar radiculopathy [Unknown]
  - Fracture [Unknown]
  - Low turnover osteopathy [Not Recovered/Not Resolved]
  - Intervertebral disc degeneration [Unknown]
  - Rib fracture [Recovering/Resolving]
  - Bone disorder [Unknown]
  - Bursitis [Unknown]
  - Cellulitis [Unknown]
  - Hypertension [Unknown]
  - Muscle strain [Unknown]
  - Spondylolisthesis [Unknown]
  - Spinal osteoarthritis [Unknown]
  - Weight increased [Unknown]
  - Haemangioma of liver [Not Recovered/Not Resolved]
  - Incisional drainage [Unknown]
  - Hiatus hernia [Unknown]
  - Osteoma [Unknown]
  - Fall [Unknown]
  - Head injury [Unknown]
  - Rotator cuff syndrome [Unknown]
  - Chondromalacia [Unknown]
  - Breast calcifications [Unknown]
  - Blood cholesterol increased [Unknown]
  - Sinusitis [Not Recovered/Not Resolved]
  - Dermatitis contact [Not Recovered/Not Resolved]
  - Bursitis [Unknown]
  - Seborrhoeic dermatitis [Unknown]
  - Candida infection [Unknown]
  - Dilatation atrial [Unknown]
  - Blood pressure increased [Unknown]
  - Hyperlipidaemia [Unknown]
  - Haemorrhoids [Unknown]
  - Pulmonary mass [Not Recovered/Not Resolved]
  - Asthma [Not Recovered/Not Resolved]
  - Chest pain [Unknown]
  - Rosacea [Not Recovered/Not Resolved]
  - Seborrhoeic keratosis [Unknown]
  - Cyst [Unknown]
  - Hypercalcaemia [Unknown]
  - Proteinuria [Unknown]
  - Sinus bradycardia [Unknown]
  - Diabetes mellitus [Unknown]
  - Dermoid cyst [Unknown]
  - Dyslipidaemia [Unknown]
  - Sciatica [Unknown]
  - Ventricular hypertrophy [Unknown]
  - Mitral valve incompetence [Unknown]
  - Fall [Unknown]
  - Joint injury [Unknown]
  - Collagen disorder [Unknown]
  - Scleral discolouration [Unknown]
  - Tooth ankylosis [Unknown]
  - Arthropod bite [Unknown]
  - Cellulitis [Recovered/Resolved]
  - Pollakiuria [Unknown]
  - Back pain [Unknown]
  - Arthralgia [Unknown]
  - Leiomyoma [Unknown]
  - Ovarian cyst [Unknown]
  - Pain in extremity [Unknown]
  - Bone pain [Unknown]
